FAERS Safety Report 24165501 (Version 1)
Quarter: 2024Q3

REPORT INFORMATION
  Report Type: Report from Study
  Country: IT (occurrence: IT)
  Receive Date: 20240802
  Receipt Date: 20240802
  Transmission Date: 20241017
  Serious: Yes (Hospitalization, Other)
  Sender: TEVA
  Company Number: None

PATIENT
  Age: 16 Year
  Sex: Male
  Weight: 50 kg

DRUGS (4)
  1. METHOTREXATE [Suspect]
     Active Substance: METHOTREXATE
     Indication: B precursor type acute leukaemia
     Dosage: 781.50 MG INFUSION OVER 30 MIN. + 7033.50 MG INFUSION IN 23.30 ON 05/21/2024 AND 06/13/2024, METO...
     Route: 042
     Dates: start: 20240521, end: 20240613
  2. TRUXIMA [Suspect]
     Active Substance: RITUXIMAB-ABBS
     Indication: B precursor type acute leukaemia
     Dosage: 586.00 MG INFUSION IN 1000 ML NACL 0.9% IN 90 MIN. ON 15/05, 20/05 AND 12/06/2024
     Route: 042
     Dates: start: 20240515, end: 20240612
  3. CYCLOPHOSPHAMIDE [Suspect]
     Active Substance: CYCLOPHOSPHAMIDE
     Indication: B precursor type acute leukaemia
     Dosage: 312.60 MG INFUSION OVER 60 MIN. IN 100 ML 5% GLUCOSE ON 16 AND 17/05/2024?312.60 MG INFUSION OVER...
     Route: 042
     Dates: start: 20240516, end: 20240617
  4. IFOSFAMIDE [Suspect]
     Active Substance: IFOSFAMIDE
     Indication: B precursor type acute leukaemia
     Dosage: 1250 MG/DAY
     Route: 042
     Dates: start: 20240521, end: 20240525

REACTIONS (6)
  - Pancytopenia [Recovered/Resolved]
  - Gamma-glutamyltransferase increased [Recovered/Resolved]
  - Stomatitis [Recovering/Resolving]
  - Alanine aminotransferase increased [Recovered/Resolved]
  - Alopecia [Not Recovered/Not Resolved]
  - Febrile neutropenia [Recovered/Resolved]

NARRATIVE: CASE EVENT DATE: 20240501
